FAERS Safety Report 8992759 (Version 1)
Quarter: 2013Q1

REPORT INFORMATION
  Report Type: Report from Study
  Country: DE (occurrence: DE)
  Receive Date: 20130102
  Receipt Date: 20130102
  Transmission Date: 20140127
  Serious: Yes (Hospitalization)
  Sender: FDA-Public Use
  Company Number: DE-ROCHE-1175653

PATIENT
  Sex: Male

DRUGS (9)
  1. ALTEPLASE [Suspect]
     Indication: ACUTE MYOCARDIAL INFARCTION
     Dosage: 15MG GIVEN AS BOLUS DOSE
     Route: 042
     Dates: start: 19940109, end: 19940109
  2. TRINITROSAN [Concomitant]
  3. HEPARIN [Concomitant]
     Route: 042
  4. ADALAT [Concomitant]
     Indication: CORONARY ARTERY DISEASE
     Route: 048
     Dates: start: 19940109, end: 19940120
  5. BELOC [Concomitant]
     Indication: CORONARY ARTERY DISEASE
     Route: 048
     Dates: start: 19940110
  6. ASS [Concomitant]
     Route: 048
     Dates: start: 19940110
  7. DIAZEPAM [Concomitant]
     Indication: SEDATION
     Route: 048
     Dates: start: 19940109, end: 19940120
  8. MONO MACK [Concomitant]
     Indication: CORONARY ARTERY DISEASE
     Route: 048
     Dates: start: 19940112, end: 19940115
  9. CORVATON [Concomitant]
     Indication: CORONARY ARTERY DISEASE
     Route: 048
     Dates: start: 19940125

REACTIONS (1)
  - Postinfarction angina [Recovered/Resolved]
